FAERS Safety Report 7958508-8 (Version None)
Quarter: 2011Q4

REPORT INFORMATION
  Report Type: 
  Country: None (occurrence: None)
  Receive Date: 20111206
  Receipt Date: 20111129
  Transmission Date: 20120403
  Serious: Yes (Hospitalization)
  Sender: FDA-Public Use
  Company Number: DK-BIOGENIDEC-2011BI039150

PATIENT
  Age: 35 Year
  Sex: Female

DRUGS (5)
  1. VITAMIN D [Concomitant]
  2. BACLOFEN [Concomitant]
     Dates: start: 20100101
  3. CALCIUM [Concomitant]
  4. TYSABRI [Suspect]
     Indication: MULTIPLE SCLEROSIS
     Route: 042
     Dates: start: 20110317, end: 20111107
  5. GABAPENTIN [Concomitant]

REACTIONS (4)
  - DYSPLASIA [None]
  - MULTIPLE SCLEROSIS RELAPSE [None]
  - ANOGENITAL WARTS [None]
  - VAGINAL CANCER [None]
